FAERS Safety Report 22040105 (Version 1)
Quarter: 2023Q1

REPORT INFORMATION
  Report Type: Spontaneous
  Country: US (occurrence: None)
  Receive Date: 20230224
  Receipt Date: 20230224
  Transmission Date: 20230417
  Serious: No
  Sender: FDA-Public Use
  Company Number: None

PATIENT
  Age: 40 Year
  Sex: Female
  Weight: 71.1 kg

DRUGS (1)
  1. METHYLPHENIDATE [Suspect]
     Active Substance: METHYLPHENIDATE
     Indication: Attention deficit hyperactivity disorder
     Dosage: OTHER QUANTITY : 2 TABLET(S);?
     Route: 048
     Dates: start: 20230125

REACTIONS (7)
  - Depression [None]
  - Migraine [None]
  - Somnolence [None]
  - Drug ineffective [None]
  - Feeling abnormal [None]
  - Job dissatisfaction [None]
  - Product formulation issue [None]

NARRATIVE: CASE EVENT DATE: 20230125
